FAERS Safety Report 14665099 (Version 1)
Quarter: 2018Q1

REPORT INFORMATION
  Report Type: Spontaneous
  Country: US (occurrence: US)
  Receive Date: 20180319
  Receipt Date: 20180319
  Transmission Date: 20180509
  Serious: Yes (Life-Threatening)
  Sender: FDA-Public Use
  Company Number: None

PATIENT
  Age: 65 Year
  Sex: Male
  Weight: 112.3 kg

DRUGS (4)
  1. DARATUMUMAB [Suspect]
     Active Substance: DARATUMUMAB
     Indication: PLASMA CELL MYELOMA
     Dosage: ?          OTHER FREQUENCY:ONE TIME;?
     Route: 041
     Dates: start: 20180310, end: 20180311
  2. DARATUMUMAB [Suspect]
     Active Substance: DARATUMUMAB
     Indication: PLASMA CELL MYELOMA
     Dosage: ?          OTHER FREQUENCY:ONE TIME;?
     Route: 041
     Dates: start: 20180310, end: 20180311
  3. DARATUMUMAB [Suspect]
     Active Substance: DARATUMUMAB
     Indication: DISEASE RECURRENCE
     Dosage: ?          OTHER FREQUENCY:ONE TIME;?
     Route: 041
     Dates: start: 20180310, end: 20180311
  4. DARATUMUMAB [Suspect]
     Active Substance: DARATUMUMAB
     Indication: DISEASE RECURRENCE
     Dosage: ?          OTHER FREQUENCY:ONE TIME;?
     Route: 041
     Dates: start: 20180310, end: 20180311

REACTIONS (6)
  - Metabolic encephalopathy [None]
  - Hyporesponsive to stimuli [None]
  - Hepatocellular injury [None]
  - Hepatic encephalopathy [None]
  - Respiratory distress [None]
  - Transaminases increased [None]

NARRATIVE: CASE EVENT DATE: 20180311
